FAERS Safety Report 9005108 (Version 1)
Quarter: 2013Q1

REPORT INFORMATION
  Report Type: Spontaneous
  Country: FR (occurrence: FR)
  Receive Date: 20130109
  Receipt Date: 20130109
  Transmission Date: 20140127
  Serious: Yes (Life-Threatening)
  Sender: FDA-Public Use
  Company Number: FR-BRISTOL-MYERS SQUIBB COMPANY-17257270

PATIENT
  Age: 71 Year
  Sex: Male

DRUGS (3)
  1. COUMADIN TABS 5 MG [Suspect]
     Dosage: 5 MG SCORED TABLET
     Route: 048
     Dates: end: 20121027
  2. EFIENT [Suspect]
     Dosage: 10 MG FILM-COATED TABLET (PRASUGREL)
     Route: 048
     Dates: start: 20121012, end: 20121027
  3. ASPEGIC [Suspect]
     Dosage: 75 MG POWDER FOR ORAL SOLUTION IN SACHET DOSE
     Route: 048
     Dates: start: 2008, end: 20121027

REACTIONS (2)
  - Intestinal haematoma [Not Recovered/Not Resolved]
  - Small intestinal obstruction [Not Recovered/Not Resolved]
